FAERS Safety Report 16810569 (Version 1)
Quarter: 2019Q4

REPORT INFORMATION
  Report Type: Spontaneous
  Country: US (occurrence: US)
  Receive Date: 20190916
  Receipt Date: 20190916
  Transmission Date: 20200122
  Serious: Yes (Hospitalization, Other)
  Sender: FDA-Public Use
  Company Number: None

PATIENT
  Age: 50 Year
  Sex: Female
  Weight: 69.3 kg

DRUGS (1)
  1. NATPARA (PARATHYROID HORMONE) [Suspect]
     Active Substance: PARATHYROID HORMONE
     Indication: HYPOPARATHYROIDISM
     Route: 058

REACTIONS (9)
  - Paraesthesia [None]
  - Product supply issue [None]
  - Recalled product [None]
  - Therapy cessation [None]
  - Arrhythmia [None]
  - Tetany [None]
  - Blood calcium decreased [None]
  - Withdrawal syndrome [None]
  - Bedridden [None]

NARRATIVE: CASE EVENT DATE: 20190915
